FAERS Safety Report 13456276 (Version 1)
Quarter: 2017Q2

REPORT INFORMATION
  Report Type: Spontaneous
  Country: US (occurrence: US)
  Receive Date: 20170419
  Receipt Date: 20170419
  Transmission Date: 20170830
  Serious: Yes (Hospitalization, Other)
  Sender: FDA-Public Use
  Company Number: None

PATIENT
  Age: 50 Year
  Sex: Female
  Weight: 64.41 kg

DRUGS (3)
  1. LATUDA [Suspect]
     Active Substance: LURASIDONE HYDROCHLORIDE
     Indication: BIPOLAR DISORDER
     Route: 048
     Dates: end: 20170330
  2. ZYPREXA [Concomitant]
     Active Substance: OLANZAPINE
  3. RAW ONE FOR WOMEN MULTI [Concomitant]

REACTIONS (6)
  - Decreased appetite [None]
  - Loss of personal independence in daily activities [None]
  - Amnesia [None]
  - Vision blurred [None]
  - Energy increased [None]
  - Headache [None]
